FAERS Safety Report 22301427 (Version 2)
Quarter: 2023Q2

REPORT INFORMATION
  Report Type: Spontaneous
  Country: US (occurrence: US)
  Receive Date: 20230509
  Receipt Date: 20230517
  Transmission Date: 20230721
  Serious: Yes (Other)
  Sender: FDA-Public Use
  Company Number: US-PURDUE-USA-2023-0301976

PATIENT
  Age: 82 Year
  Sex: Female
  Weight: 72.12 kg

DRUGS (1)
  1. COLACE [Suspect]
     Active Substance: DOCUSATE SODIUM
     Indication: Laxative supportive care
     Dosage: 1 CAPSL
     Route: 048
     Dates: start: 20230430

REACTIONS (9)
  - Foreign body in throat [Not Recovered/Not Resolved]
  - Aspiration [Not Recovered/Not Resolved]
  - Haematemesis [Not Recovered/Not Resolved]
  - Productive cough [Not Recovered/Not Resolved]
  - Dysphonia [Not Recovered/Not Resolved]
  - Oropharyngeal pain [Not Recovered/Not Resolved]
  - Throat irritation [Not Recovered/Not Resolved]
  - Product label issue [Not Recovered/Not Resolved]
  - Product physical issue [Not Recovered/Not Resolved]

NARRATIVE: CASE EVENT DATE: 20230501
